FAERS Safety Report 16543961 (Version 1)
Quarter: 2019Q3

REPORT INFORMATION
  Report Type: Spontaneous
  Country: FR (occurrence: FR)
  Receive Date: 20190709
  Receipt Date: 20190709
  Transmission Date: 20191004
  Serious: Yes (Disabling)
  Sender: FDA-Public Use
  Company Number: FR-ABBVIE-19K-056-2844298-00

PATIENT
  Sex: Male

DRUGS (4)
  1. KALETRA [Suspect]
     Active Substance: LOPINAVIR\RITONAVIR
     Indication: MATERNAL EXPOSURE TIMING UNSPECIFIED
  2. KALETRA [Suspect]
     Active Substance: LOPINAVIR\RITONAVIR
     Indication: HIV INFECTION
     Route: 064
     Dates: end: 201307
  3. TRUVADA [Suspect]
     Active Substance: EMTRICITABINE\TENOFOVIR DISOPROXIL FUMARATE
     Indication: HIV INFECTION
     Route: 064
     Dates: end: 201307
  4. RETROVIR [Suspect]
     Active Substance: ZIDOVUDINE
     Indication: FOETAL EXPOSURE DURING PREGNANCY
     Route: 048
     Dates: start: 20130817, end: 20130831

REACTIONS (3)
  - Foetal exposure during pregnancy [Unknown]
  - Psychomotor hyperactivity [Not Recovered/Not Resolved]
  - Language disorder [Not Recovered/Not Resolved]

NARRATIVE: CASE EVENT DATE: 2013
